FAERS Safety Report 9178235 (Version 3)
Quarter: 2013Q2

REPORT INFORMATION
  Report Type: Spontaneous
  Country: DE (occurrence: DE)
  Receive Date: 20130321
  Receipt Date: 20130603
  Transmission Date: 20140414
  Serious: Yes (Death, Life-Threatening, Hospitalization, Other)
  Sender: FDA-Public Use
  Company Number: DE-ELI_LILLY_AND_COMPANY-DE201303003745

PATIENT
  Age: 68 Year
  Sex: Female

DRUGS (21)
  1. FORSTEO [Suspect]
     Indication: OSTEOPOROSIS
     Dosage: 20UG, QD
     Route: 058
     Dates: start: 20120808, end: 20130227
  2. ATROVENT [Concomitant]
     Dosage: 500UG/2ML
  3. BERODUAL [Concomitant]
     Dosage: 6 PUFFS/DAY
  4. BRICANYL [Concomitant]
     Dosage: UNK UNK, PRN
  5. CALCIUM BETA [Concomitant]
     Dosage: 1000 BTA
  6. DEXA-S [Concomitant]
     Dosage: 500UG
  7. DOXEPIN [Concomitant]
     Dosage: 75MG
  8. FORMOTOP [Concomitant]
     Dosage: 12UG
  9. VERAPAMIL [Concomitant]
     Dosage: 120
  10. LACTULOSE AL [Concomitant]
  11. MARCUMAR [Concomitant]
  12. MCP STADA [Concomitant]
     Dosage: UNK UNK, PRN
  13. NOVOPULMON [Concomitant]
     Dosage: 200, UNK
  14. PALLADON RETARD [Concomitant]
     Dosage: 8MG
  15. PALLADON [Concomitant]
     Indication: PAIN
     Dosage: 2.6 MG, PRN
  16. PANTOPRAZOL ACTAVIS [Concomitant]
     Dosage: 20MG
  17. PREDNISOLON GALEN [Concomitant]
     Dosage: 5MG
  18. RATIO-SALBUTAMOL                   /00139501/ [Concomitant]
     Dosage: 10X10ML
  19. TORASEMID AL [Concomitant]
     Dosage: 10MG
  20. VIGANTOLETTEN [Concomitant]
     Dosage: UNK
  21. OXYGEN [Concomitant]

REACTIONS (15)
  - Respiratory failure [Fatal]
  - Cardiac arrest [Unknown]
  - Brain hypoxia [Unknown]
  - Renal failure [Unknown]
  - Atrial fibrillation [Recovering/Resolving]
  - Atrial fibrillation [Recovering/Resolving]
  - Pulmonary hypertension [Unknown]
  - Cytomegalovirus infection [Unknown]
  - Tricuspid valve incompetence [Unknown]
  - Gastrooesophageal reflux disease [Unknown]
  - Skin injury [Unknown]
  - Hyperthyroidism [Unknown]
  - Hypothermia [Recovered/Resolved]
  - Myoclonus [Unknown]
  - Strabismus [Unknown]
